FAERS Safety Report 6451454-0 (Version None)
Quarter: 2009Q4

REPORT INFORMATION
  Report Type: 
  Country: None (occurrence: None)
  Receive Date: 20091123
  Receipt Date: 20090112
  Transmission Date: 20100525
  Serious: No
  Sender: FDA-Public Use
  Company Number: US-BRISTOL-MYERS SQUIBB COMPANY-14466932

PATIENT
  Age: 65 Year
  Sex: Male
  Weight: 132 kg

DRUGS (2)
  1. AVALIDE [Suspect]
     Indication: HYPERTENSION
     Dosage: 1 DOSAGE FORM = 300/25 MG. DURATION: 18 MONTHS AGO.
  2. LIPITOR [Concomitant]

REACTIONS (1)
  - HYPERSENSITIVITY [None]
